FAERS Safety Report 7197646-7 (Version None)
Quarter: 2010Q4

REPORT INFORMATION
  Report Type: 
  Country: None (occurrence: None)
  Receive Date: 20101213
  Receipt Date: 20101203
  Transmission Date: 20110411
  Serious: Yes (Hospitalization)
  Sender: FDA-Public Use
  Company Number: KV200801294

PATIENT
  Age: 56 Year
  Sex: Female

DRUGS (10)
  1. MORPHINE SULFATE [Suspect]
     Indication: PAIN
     Dosage: 30 MG, BID, ORAL
     Route: 048
  2. MORPHINE SULFATE [Suspect]
     Indication: PAIN
     Dosage: 60 MG, BID, ORAL
     Route: 048
  3. SEROQUEL [Concomitant]
  4. OXYCODONE HCL [Concomitant]
  5. VALIUM [Concomitant]
  6. METHADONE HCL [Concomitant]
  7. LEXAPRO [Concomitant]
  8. LASIX [Concomitant]
  9. BENTYL [Concomitant]
  10. AMBIEN [Concomitant]

REACTIONS (19)
  - ABDOMINAL PAIN [None]
  - ABNORMAL BEHAVIOUR [None]
  - ACCIDENTAL OVERDOSE [None]
  - ANKLE FRACTURE [None]
  - DRUG DEPENDENCE [None]
  - DRY SKIN [None]
  - DYSPNOEA [None]
  - FALL [None]
  - FLATULENCE [None]
  - HYPOKALAEMIA [None]
  - INSOMNIA [None]
  - LETHARGY [None]
  - LOSS OF CONSCIOUSNESS [None]
  - NEPHROLITHIASIS [None]
  - OVERDOSE [None]
  - PRODUCT QUALITY ISSUE [None]
  - REFUSAL OF TREATMENT BY PATIENT [None]
  - SOMNOLENCE [None]
  - URINARY INCONTINENCE [None]
